FAERS Safety Report 7190565-1 (Version None)
Quarter: 2010Q4

REPORT INFORMATION
  Report Type: 
  Country: None (occurrence: None)
  Receive Date: 20101210
  Receipt Date: 20101124
  Transmission Date: 20110411
  Serious: Yes (Hospitalization)
  Sender: FDA-Public Use
  Company Number: 2010005136

PATIENT
  Age: 75 Year
  Sex: Female
  Weight: 48.5349 kg

DRUGS (9)
  1. ERLOTINIB HYDROCHLORIDE [Suspect]
     Indication: NON-SMALL CELL LUNG CANCER
     Dosage: (150 MG), ORAL
     Route: 048
     Dates: start: 20101101
  2. PAZOPANIB/PLACEBO [Suspect]
     Indication: NON-SMALL CELL LUNG CANCER
     Dosage: (600 MG), ORAL
     Route: 048
     Dates: start: 20101101
  3. COUMADIN [Concomitant]
  4. CRESTOR [Concomitant]
  5. ACETAMINOPHEN [Concomitant]
  6. ULTRAM [Concomitant]
  7. BYSTOLIC [Concomitant]
  8. DIFLUCAN [Concomitant]
  9. ZOFRAN [Concomitant]

REACTIONS (4)
  - BRAIN MIDLINE SHIFT [None]
  - CEREBRAL HAEMORRHAGE [None]
  - INTERNATIONAL NORMALISED RATIO INCREASED [None]
  - TACHYCARDIA [None]
